FAERS Safety Report 16718680 (Version 2)
Quarter: 2023Q1

REPORT INFORMATION
  Report Type: Spontaneous
  Country: PL (occurrence: PL)
  Receive Date: 20190820
  Receipt Date: 20230124
  Transmission Date: 20230418
  Serious: Yes (Other)
  Sender: FDA-Public Use
  Company Number: PL-CELLTRION INC.-2019PL018426

PATIENT

DRUGS (22)
  1. INFLIXIMAB [Suspect]
     Active Substance: INFLIXIMAB
     Indication: Product used for unknown indication
     Dosage: 3 DOSES
     Dates: start: 200804
  2. INFLIXIMAB [Suspect]
     Active Substance: INFLIXIMAB
     Dosage: 3 DOSES
     Dates: start: 200805
  3. INFLIXIMAB [Suspect]
     Active Substance: INFLIXIMAB
     Dosage: 3 DF, UNK
     Route: 065
  4. INFLIXIMAB [Suspect]
     Active Substance: INFLIXIMAB
     Dosage: 3 DOSES
     Dates: start: 200804, end: 200805
  5. METOPROLOL [Suspect]
     Active Substance: METOPROLOL
     Indication: Hypertension
     Dosage: 50 MILLIGRAM, QD
     Route: 065
  6. BUDESONIDE [Suspect]
     Active Substance: BUDESONIDE
     Indication: Crohn^s disease
     Dosage: 3 MILLIGRAM, QD
     Route: 048
     Dates: start: 201405
  7. BUDESONIDE [Suspect]
     Active Substance: BUDESONIDE
     Dosage: 3 MG UNK
     Dates: start: 201212
  8. BUDESONIDE [Suspect]
     Active Substance: BUDESONIDE
     Dosage: 3 MG, UNK
     Dates: start: 200911
  9. BUDESONIDE [Suspect]
     Active Substance: BUDESONIDE
     Dosage: 3 MG, UNK
     Dates: start: 201405
  10. BUDESONIDE [Suspect]
     Active Substance: BUDESONIDE
     Dosage: 3 MG, UNK
     Dates: start: 201012
  11. BUDESONIDE [Suspect]
     Active Substance: BUDESONIDE
     Dosage: 3 MG, UNK
     Dates: start: 201112
  12. BUDESONIDE [Suspect]
     Active Substance: BUDESONIDE
     Dosage: 3 MG, UNK
     Dates: start: 201410
  13. BUDESONIDE [Suspect]
     Active Substance: BUDESONIDE
     Dosage: 3 MG, UNK
     Dates: start: 201402
  14. BUDESONIDE [Suspect]
     Active Substance: BUDESONIDE
     Dosage: ENTERIC
  15. METHYLPREDNISOLONE [Suspect]
     Active Substance: METHYLPREDNISOLONE
     Indication: Product used for unknown indication
     Dosage: 32 MG, UNK
     Dates: start: 200805
  16. METHYLPREDNISOLONE [Suspect]
     Active Substance: METHYLPREDNISOLONE
     Dosage: 32 MG, UNK
     Dates: start: 200802
  17. AZATHIOPRINE [Suspect]
     Active Substance: AZATHIOPRINE
     Indication: Product used for unknown indication
     Dosage: 100 MG, UNK
     Dates: start: 201112
  18. AZATHIOPRINE [Suspect]
     Active Substance: AZATHIOPRINE
     Dosage: UNK
     Dates: start: 201205, end: 201205
  19. AZATHIOPRINE [Suspect]
     Active Substance: AZATHIOPRINE
     Dosage: 100 MG, UNK
     Dates: start: 201012, end: 201205
  20. AZATHIOPRINE [Suspect]
     Active Substance: AZATHIOPRINE
     Dosage: UNK
     Dates: start: 200910, end: 201205
  21. NITRENDIPINE [Suspect]
     Active Substance: NITRENDIPINE
     Indication: Product used for unknown indication
     Dosage: 15 MG, BID
  22. NITRENDIPINE [Suspect]
     Active Substance: NITRENDIPINE
     Dosage: 15 MG, BID

REACTIONS (9)
  - Proteinuria [Unknown]
  - Maternal exposure during breast feeding [Unknown]
  - Maternal exposure during pregnancy [Recovered/Resolved]
  - C-reactive protein abnormal [Unknown]
  - Blood albumin increased [Unknown]
  - Abdominal pain [Unknown]
  - Diarrhoea [Unknown]
  - Pyrexia [Recovered/Resolved]
  - Urinary tract infection [Unknown]

NARRATIVE: CASE EVENT DATE: 20090501
